FAERS Safety Report 24914644 (Version 2)
Quarter: 2025Q3

REPORT INFORMATION
  Report Type: Spontaneous
  Country: EU (occurrence: EU)
  Receive Date: 20250203
  Receipt Date: 20250911
  Transmission Date: 20251021
  Serious: Yes (Hospitalization, Other)
  Sender: DR REDDYS
  Company Number: None

PATIENT
  Age: 45 Year
  Sex: Female

DRUGS (7)
  1. PREGABALIN [Suspect]
     Active Substance: PREGABALIN
     Indication: Bipolar I disorder
  2. CARIPRAZINE [Suspect]
     Active Substance: CARIPRAZINE
     Indication: Bipolar I disorder
  3. LORAZEPAM [Suspect]
     Active Substance: LORAZEPAM
     Indication: Bipolar I disorder
  4. LURASIDONE [Suspect]
     Active Substance: LURASIDONE
     Indication: Bipolar I disorder
  5. MIANSERIN [Suspect]
     Active Substance: MIANSERIN
     Indication: Product use in unapproved indication
     Dates: start: 2021
  6. OLANZAPINE [Suspect]
     Active Substance: OLANZAPINE
     Indication: Product use in unapproved indication
     Dates: start: 2021
  7. SERTRALINE [Suspect]
     Active Substance: SERTRALINE HYDROCHLORIDE
     Indication: Product used for unknown indication
     Dates: start: 2021

REACTIONS (5)
  - Treatment noncompliance [Unknown]
  - Drug ineffective for unapproved indication [Unknown]
  - Anxiety [Unknown]
  - Akathisia [Unknown]
  - Product use in unapproved indication [Unknown]

NARRATIVE: CASE EVENT DATE: 20210101
